FAERS Safety Report 16701246 (Version 1)
Quarter: 2019Q3

REPORT INFORMATION
  Report Type: Spontaneous
  Country: US (occurrence: US)
  Receive Date: 20190627
  Receipt Date: 20190627
  Transmission Date: 20191004
  Serious: Yes (Other)
  Sender: FDA-Public Use
  Company Number: None

PATIENT
  Sex: Male

DRUGS (6)
  1. VANCOMYCIN [Concomitant]
     Active Substance: VANCOMYCIN
  2. CAPECITABINE, 500MG [Suspect]
     Active Substance: CAPECITABINE
     Indication: MALIGNANT ANORECTAL NEOPLASM
     Route: 048
     Dates: start: 20190529
  3. CAPECITABINE. [Suspect]
     Active Substance: CAPECITABINE
     Route: 048
  4. OXYCODONE/APAP [Concomitant]
     Active Substance: ACETAMINOPHEN\OXYCODONE HYDROCHLORIDE
  5. DOK [Concomitant]
     Active Substance: DOCUSATE SODIUM
  6. GAVILYTE [Concomitant]

REACTIONS (2)
  - Disease complication [None]
  - Colostomy [None]
